FAERS Safety Report 8986619 (Version 3)
Quarter: 2013Q3

REPORT INFORMATION
  Report Type: Report from Study
  Country: CA (occurrence: CA)
  Receive Date: 20121227
  Receipt Date: 20130724
  Transmission Date: 20140515
  Serious: Yes (Death, Other)
  Sender: FDA-Public Use
  Company Number: CA-ELI_LILLY_AND_COMPANY-CA201212006073

PATIENT
  Age: 82 Year
  Sex: Female

DRUGS (8)
  1. TERIPARATIDE [Suspect]
     Indication: OSTEOPOROSIS
     Dosage: 20 UG, QD
     Route: 058
     Dates: start: 20111012
  2. PANTOPRAZOLE [Concomitant]
     Dosage: UNK, UNKNOWN
  3. ASA [Concomitant]
     Dosage: 81 MG, UNKNOWN
  4. ATENOLOL [Concomitant]
     Dosage: UNK, UNKNOWN
  5. DILTIAZEM [Concomitant]
     Dosage: UNK, UNKNOWN
  6. CARBACHOL [Concomitant]
     Dosage: UNK, UNKNOWN
  7. TYLENOL                                 /SCH/ [Concomitant]
     Dosage: UNK, UNKNOWN
  8. VITAMIN D [Concomitant]

REACTIONS (3)
  - Lip and/or oral cavity cancer [Not Recovered/Not Resolved]
  - Death [Fatal]
  - Neck mass [Not Recovered/Not Resolved]
